FAERS Safety Report 7578485-1 (Version None)
Quarter: 2011Q2

REPORT INFORMATION
  Report Type: 
  Country: None (occurrence: None)
  Receive Date: 20110628
  Receipt Date: 20110617
  Transmission Date: 20111010
  Serious: Yes (Other)
  Sender: FDA-Public Use
  Company Number: US-MERCK-0708USA04342

PATIENT
  Age: 66 Year
  Sex: Female
  Weight: 60 kg

DRUGS (11)
  1. FOSAMAX [Suspect]
     Route: 048
     Dates: start: 20000101
  2. FOSAMAX [Suspect]
     Route: 048
     Dates: start: 19990524
  3. PULMICORT [Concomitant]
     Route: 065
     Dates: start: 20060101
  4. FOSAMAX [Suspect]
     Indication: OSTEOPOROSIS POSTMENOPAUSAL
     Route: 048
     Dates: start: 19960201
  5. ZYRTEC [Concomitant]
     Indication: HYPERSENSITIVITY
     Route: 065
     Dates: start: 19980101
  6. CLONAZEPAM [Concomitant]
     Indication: RESTLESS LEGS SYNDROME
     Route: 065
     Dates: start: 19920101
  7. FOSAMAX [Suspect]
     Route: 048
     Dates: start: 19990607
  8. FOSAMAX [Suspect]
     Route: 048
     Dates: start: 20010206, end: 20060101
  9. LEVOTHYROXINE SODIUM [Concomitant]
     Indication: HYPOTHYROIDISM
     Route: 065
     Dates: start: 19850101
  10. FLEXERIL [Concomitant]
     Indication: MUSCLE SPASMS
     Route: 048
     Dates: start: 19980101
  11. VISTARIL [Concomitant]
     Indication: HYPERSENSITIVITY
     Route: 065
     Dates: start: 19850101

REACTIONS (50)
  - PLANTAR FASCIITIS [None]
  - HYPERTENSION [None]
  - OSTEONECROSIS OF JAW [None]
  - CHEST DISCOMFORT [None]
  - NECK PAIN [None]
  - LORDOSIS [None]
  - ANGIOPATHY [None]
  - TINNITUS [None]
  - DEPRESSION [None]
  - CATARACT [None]
  - DIZZINESS [None]
  - FIBROMA [None]
  - DEVICE FAILURE [None]
  - DRUG ADMINISTRATION ERROR [None]
  - DRY MOUTH [None]
  - LACTOSE INTOLERANCE [None]
  - DYSPEPSIA [None]
  - TRANSIENT ISCHAEMIC ATTACK [None]
  - HYPERACUSIS [None]
  - INSOMNIA [None]
  - BLADDER DISORDER [None]
  - BACK PAIN [None]
  - ARTHRITIS [None]
  - ASTHMA [None]
  - EXCESSIVE SKIN [None]
  - ORAL TORUS [None]
  - NEURALGIA [None]
  - VIRAL INFECTION [None]
  - POST CONCUSSION SYNDROME [None]
  - BASAL GANGLIA STROKE [None]
  - DENTAL CARIES [None]
  - FALL [None]
  - MALOCCLUSION [None]
  - URINARY INCONTINENCE [None]
  - SYNCOPE [None]
  - CONCUSSION [None]
  - ARTERIOSCLEROSIS [None]
  - ORAL DISORDER [None]
  - TOOTH FRACTURE [None]
  - INCREASED TENDENCY TO BRUISE [None]
  - HEADACHE [None]
  - ALOPECIA [None]
  - ORAL FIBROMA [None]
  - MIGRAINE [None]
  - SINUSITIS [None]
  - HAEMATOMA [None]
  - BRUXISM [None]
  - GINGIVITIS [None]
  - EAR PAIN [None]
  - OSTEOPENIA [None]
